FAERS Safety Report 20139561 (Version 1)
Quarter: 2021Q4

REPORT INFORMATION
  Report Type: Spontaneous
  Country: CN (occurrence: CN)
  Receive Date: 20211202
  Receipt Date: 20211202
  Transmission Date: 20220304
  Serious: Yes (Hospitalization)
  Sender: FDA-Public Use
  Company Number: CN-PFIZER INC-202101619500

PATIENT
  Age: 35 Year
  Sex: Male
  Weight: 54 kg

DRUGS (14)
  1. ZYVOX [Suspect]
     Active Substance: LINEZOLID
     Indication: Pulmonary tuberculosis
     Dosage: 0.6 G, 1X/DAY
     Route: 048
     Dates: start: 20211027, end: 20211110
  2. ZYVOX [Suspect]
     Active Substance: LINEZOLID
     Indication: Microscopy
  3. LEVOFLOXACIN [Suspect]
     Active Substance: LEVOFLOXACIN
     Indication: Pulmonary tuberculosis
     Dosage: 500 MG, 1X/DAY
     Route: 048
     Dates: start: 20211022, end: 20211110
  4. LEVOFLOXACIN [Suspect]
     Active Substance: LEVOFLOXACIN
     Indication: Microscopy
  5. ISONIAZID [Suspect]
     Active Substance: ISONIAZID
     Indication: Pulmonary tuberculosis
     Dosage: 300 MG, 1X/DAY
     Route: 048
     Dates: start: 20211022, end: 20211110
  6. ISONIAZID [Suspect]
     Active Substance: ISONIAZID
     Indication: Microscopy
  7. ETHAMBUTOL HYDROCHLORIDE [Suspect]
     Active Substance: ETHAMBUTOL HYDROCHLORIDE
     Indication: Pulmonary tuberculosis
     Dosage: 0.75 G, 1X/DAY
     Route: 048
     Dates: start: 20211022, end: 20211110
  8. ETHAMBUTOL HYDROCHLORIDE [Suspect]
     Active Substance: ETHAMBUTOL HYDROCHLORIDE
     Indication: Microscopy
  9. AMIKACIN SULFATE [Suspect]
     Active Substance: AMIKACIN SULFATE
     Indication: Pulmonary tuberculosis
     Dosage: 400 MG, 1X/DAY
     Route: 041
     Dates: start: 20211027, end: 20211109
  10. AMIKACIN SULFATE [Suspect]
     Active Substance: AMIKACIN SULFATE
     Indication: Microscopy
  11. PYRAZINAMIDE [Concomitant]
     Active Substance: PYRAZINAMIDE
     Indication: Pulmonary tuberculosis
     Dosage: 1.5 G, 1X/DAY
     Route: 048
     Dates: start: 20211022, end: 20211029
  12. PYRAZINAMIDE [Concomitant]
     Active Substance: PYRAZINAMIDE
     Indication: Microscopy
  13. WEI FU XIN [Concomitant]
     Indication: Pulmonary tuberculosis
     Dosage: 0.6 G, 1X/DAY
     Route: 041
     Dates: start: 20211022, end: 20211031
  14. WEI FU XIN [Concomitant]
     Indication: Microscopy

REACTIONS (2)
  - Hepatic function abnormal [Recovering/Resolving]
  - Off label use [Unknown]

NARRATIVE: CASE EVENT DATE: 20211027
